FAERS Safety Report 18311203 (Version 2)
Quarter: 2020Q4

REPORT INFORMATION
  Report Type: Not Available
  Country: US (occurrence: US)
  Receive Date: 20200925
  Receipt Date: 20201016
  Transmission Date: 20210113
  Serious: Yes (Other)
  Sender: FDA-Public Use
  Company Number: US-NEUROCRINE BIOSCIENCES INC.-2020NBI03394

PATIENT
  Age: 74 Year
  Sex: Female

DRUGS (2)
  1. INGREZZA [Suspect]
     Active Substance: VALBENAZINE
     Route: 048
     Dates: start: 20200903
  2. INGREZZA [Suspect]
     Active Substance: VALBENAZINE
     Indication: TARDIVE DYSKINESIA
     Route: 048
     Dates: start: 20200826, end: 20200902

REACTIONS (8)
  - Rib fracture [Unknown]
  - Fatigue [Unknown]
  - Vision blurred [Unknown]
  - Suicidal ideation [Unknown]
  - Depression [Unknown]
  - Fall [Recovered/Resolved]
  - Dizziness [Unknown]
  - Vomiting [Unknown]

NARRATIVE: CASE EVENT DATE: 2020
